FAERS Safety Report 21710726 (Version 3)
Quarter: 2023Q1

REPORT INFORMATION
  Report Type: Other
  Country: DE (occurrence: None)
  Receive Date: 20221212
  Receipt Date: 20230317
  Transmission Date: 20230418
  Serious: No
  Sender: FDA-Public Use
  Company Number: DE-ROCHE-3178052

PATIENT
  Age: 26 Year
  Sex: Female

DRUGS (11)
  1. OCRELIZUMAB [Suspect]
     Active Substance: OCRELIZUMAB
     Indication: Relapsing multiple sclerosis
     Route: 042
     Dates: start: 20220711
  2. OCRELIZUMAB [Suspect]
     Active Substance: OCRELIZUMAB
     Route: 042
     Dates: start: 20230307
  3. CHOLECALCIFEROL [Concomitant]
     Active Substance: CHOLECALCIFEROL
     Indication: Vitamin D deficiency
     Route: 048
     Dates: start: 2015
  4. IBUPROFEN [Concomitant]
     Active Substance: IBUPROFEN
     Indication: Dysmenorrhoea
     Route: 048
     Dates: start: 2010
  5. HEPATITIS A VIRUS STRAIN HM175 ANTIGEN (FORMALDEHYDE INACTIVATED) [Concomitant]
     Active Substance: HEPATITIS A VIRUS STRAIN HM175 ANTIGEN (FORMALDEHYDE INACTIVATED)
     Indication: Prophylaxis
     Route: 030
     Dates: start: 20220525, end: 20220525
  6. CIPROFLOXACIN [Concomitant]
     Active Substance: CIPROFLOXACIN
     Indication: Urinary tract infection bacterial
     Route: 048
     Dates: start: 20220629, end: 20220703
  7. FERROUS GLYCINE SULFATE [Concomitant]
     Active Substance: FERROUS GLYCINE SULFATE
     Indication: Iron deficiency anaemia
     Route: 048
     Dates: start: 20220712
  8. PREDNISOLONE [Concomitant]
     Active Substance: PREDNISOLONE
     Dosage: V1 BASELINE
     Route: 042
     Dates: start: 20220711, end: 20220711
  9. PREDNISOLONE [Concomitant]
     Active Substance: PREDNISOLONE
     Dosage: V1 BASELINE - 2ND INFUSION
     Route: 042
     Dates: start: 20220907, end: 20220907
  10. EBASTINE [Concomitant]
     Active Substance: EBASTINE
     Dosage: V1 BASELINE, 2 TIMES A DAY FOR 3 DAYS, START 1DAY BEFORE INFUSION.
     Route: 048
     Dates: start: 20220710, end: 20220712
  11. EBASTINE [Concomitant]
     Active Substance: EBASTINE
     Dosage: V1 BASELINE - 2ND INFUSION,2 TIMES A DAY FOR 3 DAYS, START 1DAY BEFORE INFUSION.
     Route: 048
     Dates: start: 20220906, end: 20220908

REACTIONS (4)
  - Gastrooesophageal reflux disease [Not Recovered/Not Resolved]
  - Urinary tract infection [Recovered/Resolved]
  - COVID-19 [Recovered/Resolved]
  - Upper respiratory tract infection [Recovered/Resolved]

NARRATIVE: CASE EVENT DATE: 20220723
